FAERS Safety Report 6975207-X (Version None)
Quarter: 2010Q3

REPORT INFORMATION
  Report Type: 
  Country: None (occurrence: None)
  Receive Date: 20100910
  Receipt Date: 20090216
  Transmission Date: 20110219
  Serious: No
  Sender: FDA-Public Use
  Company Number: US-WYE-H08245109

PATIENT
  Sex: Female
  Weight: 71.28 kg

DRUGS (2)
  1. PRISTIQ [Suspect]
     Indication: DEPRESSION
     Route: 048
     Dates: start: 20090101, end: 20090214
  2. CHLOROQUINE PHOSPHATE [Concomitant]

REACTIONS (6)
  - CHEST DISCOMFORT [None]
  - DIZZINESS [None]
  - FEELING COLD [None]
  - FEELING DRUNK [None]
  - PALPITATIONS [None]
  - UNEVALUABLE EVENT [None]
